FAERS Safety Report 4508527-9 (Version None)
Quarter: 2004Q4

REPORT INFORMATION
  Report Type: 
  Country: None (occurrence: None)
  Receive Date: 20041123
  Receipt Date: 20040317
  Transmission Date: 20050328
  Serious: No
  Sender: FDA-Public Use
  Company Number: US-GLAXOSMITHKLINE-A0503232A

PATIENT
  Age: 49 Year
  Sex: Female

DRUGS (4)
  1. WELLBUTRIN SR [Suspect]
     Dosage: 150MG PER DAY
     Route: 048
     Dates: start: 20040301
  2. BIAXIN [Concomitant]
  3. ALBUTEROL [Concomitant]
  4. ACIPHEX [Concomitant]

REACTIONS (6)
  - AFFECT LABILITY [None]
  - DEPRESSION [None]
  - DYSPNOEA [None]
  - MUSCLE CRAMP [None]
  - SWELLING FACE [None]
  - SWOLLEN TONGUE [None]
